FAERS Safety Report 8972442 (Version 1)
Quarter: 2012Q4

REPORT INFORMATION
  Report Type: 
  Country: BR (occurrence: BR)
  Receive Date: 20121219
  Receipt Date: 20121219
  Transmission Date: 20130627
  Serious: Yes (Other)
  Sender: FDA-Public Use
  Company Number: BR-PFIZER INC-2012305982

PATIENT
  Age: 34 Year
  Sex: Female
  Weight: 52 kg

DRUGS (1)
  1. NORDETTE-21 [Suspect]
     Indication: CONTRACEPTION
     Dosage: UNK
     Route: 048
     Dates: start: 1999, end: 20121115

REACTIONS (4)
  - Cholelithiasis [Not Recovered/Not Resolved]
  - Inappropriate schedule of drug administration [Unknown]
  - Menstruation irregular [Recovered/Resolved]
  - Vaginal discharge [Unknown]
